FAERS Safety Report 5942153-X (Version None)
Quarter: 2008Q4

REPORT INFORMATION
  Report Type: 
  Country: None (occurrence: None)
  Receive Date: 20081105
  Receipt Date: 20081030
  Transmission Date: 20090506
  Serious: Yes (Other)
  Sender: FDA-Public Use
  Company Number: US-JNJFOC-20081100199

PATIENT
  Age: 2 Year

DRUGS (4)
  1. CONCENTRATED MOTRIN INFANTS [Suspect]
  2. CONCENTRATED MOTRIN INFANTS [Suspect]
     Indication: PYREXIA
  3. TYLENOL [Suspect]
  4. TYLENOL [Suspect]
     Indication: PYREXIA

REACTIONS (1)
  - BODY TEMPERATURE DECREASED [None]
